FAERS Safety Report 17222175 (Version 1)
Quarter: 2020Q1

REPORT INFORMATION
  Report Type: Spontaneous
  Country: US (occurrence: US)
  Receive Date: 20200101
  Receipt Date: 20200101
  Transmission Date: 20200409
  Serious: No
  Sender: FDA-Public Use
  Company Number: US-ASTRAZENECA-2019SF73478

PATIENT
  Age: 59 Year
  Sex: Female

DRUGS (18)
  1. HUMIRA [Suspect]
     Active Substance: ADALIMUMAB
     Indication: RHEUMATOID ARTHRITIS
     Dosage: 40 MG , ONCE IN TWO WEEKS
     Route: 058
     Dates: start: 201907, end: 201907
  2. VITAMIN D3 [Concomitant]
     Active Substance: CHOLECALCIFEROL
     Route: 065
  3. CALCIUM CITRATE [Concomitant]
     Active Substance: CALCIUM CITRATE
     Route: 065
  4. FLUTICASONE PROPIONATE. [Concomitant]
     Active Substance: FLUTICASONE PROPIONATE
     Route: 065
  5. HUMIRA [Suspect]
     Active Substance: ADALIMUMAB
     Indication: RHEUMATOID ARTHRITIS
     Dosage: 40 MG , ONCE IN TWO WEEKS
     Route: 058
     Dates: start: 2019
  6. TURMERIC [Concomitant]
     Active Substance: HERBALS\TURMERIC
     Route: 065
  7. TYLENOL [Concomitant]
     Active Substance: ACETAMINOPHEN
     Route: 065
  8. TRAMADOL. [Concomitant]
     Active Substance: TRAMADOL
     Route: 065
  9. FOLIC ACID. [Concomitant]
     Active Substance: FOLIC ACID
     Route: 065
  10. DORZOLAMIDE [Concomitant]
     Active Substance: DORZOLAMIDE
     Route: 065
  11. PROLIA [Concomitant]
     Active Substance: DENOSUMAB
     Route: 065
  12. ZYRTEC [Concomitant]
     Active Substance: CETIRIZINE HYDROCHLORIDE
     Route: 065
  13. METHOTREXATE. [Concomitant]
     Active Substance: METHOTREXATE
     Route: 065
  14. LEUCOVORIN. [Concomitant]
     Active Substance: LEUCOVORIN
     Route: 065
  15. NEXIUM [Suspect]
     Active Substance: ESOMEPRAZOLE MAGNESIUM
     Route: 042
  16. DILTIAZEM. [Concomitant]
     Active Substance: DILTIAZEM
     Route: 065
  17. NYSTATIN. [Concomitant]
     Active Substance: NYSTATIN
     Route: 065
  18. LATANOPROST. [Concomitant]
     Active Substance: LATANOPROST
     Route: 065

REACTIONS (8)
  - Sunburn [Recovered/Resolved]
  - Joint swelling [Unknown]
  - Gastrooesophageal reflux disease [Unknown]
  - Nausea [Recovered/Resolved]
  - Arthralgia [Not Recovered/Not Resolved]
  - Therapeutic product effect incomplete [Unknown]
  - Photosensitivity reaction [Recovered/Resolved]
  - Back pain [Unknown]

NARRATIVE: CASE EVENT DATE: 2019
